FAERS Safety Report 25463254 (Version 2)
Quarter: 2025Q4

REPORT INFORMATION
  Report Type: Spontaneous
  Country: EG (occurrence: EG)
  Receive Date: 20250620
  Receipt Date: 20251203
  Transmission Date: 20260118
  Serious: Yes (Other)
  Sender: ASTELLAS
  Company Number: EG-ASTELLAS-2025-AER-032932

PATIENT
  Age: 73 Year
  Sex: Male

DRUGS (1)
  1. PADCEV [Suspect]
     Active Substance: ENFORTUMAB VEDOTIN-EJFV
     Indication: Bladder cancer
     Dosage: 2 CYCLES
     Route: 065

REACTIONS (4)
  - Skin toxicity [Unknown]
  - Fatigue [Unknown]
  - Underdose [Unknown]
  - Off label use [Unknown]
